FAERS Safety Report 6417298-0 (Version None)
Quarter: 2009Q4

REPORT INFORMATION
  Report Type: 
  Country: None (occurrence: None)
  Receive Date: 20091028
  Receipt Date: 20091019
  Transmission Date: 20100525
  Serious: Yes (Other)
  Sender: FDA-Public Use
  Company Number: PHEH2009US09111

PATIENT
  Sex: Male
  Weight: 62.585 kg

DRUGS (6)
  1. METHYLPHENIDATE HCL [Suspect]
     Indication: HYPOPITUITARISM
     Dosage: 2X20 MG DOSAGE FORM TID
  2. METHYLPHENIDATE HCL [Suspect]
     Dosage: 20 MG 2 TID
     Dates: start: 20090730
  3. HUMATROPE [Concomitant]
     Dosage: UNK
  4. T4 [Concomitant]
     Dosage: UNK
  5. THYROID TAB [Concomitant]
     Dosage: UNK
  6. TESTOSTERONE [Concomitant]
     Dosage: UNK

REACTIONS (3)
  - LARYNGOSPASM [None]
  - PRODUCTIVE COUGH [None]
  - THROAT IRRITATION [None]
